FAERS Safety Report 23691354 (Version 4)
Quarter: 2024Q2

REPORT INFORMATION
  Report Type: Report from Study
  Country: CO (occurrence: CO)
  Receive Date: 20240401
  Receipt Date: 20240423
  Transmission Date: 20240715
  Serious: Yes (Other)
  Sender: FDA-Public Use
  Company Number: CO-BAYER-2024A044374

PATIENT
  Age: 55 Year
  Sex: Female

DRUGS (2)
  1. NEXAVAR [Suspect]
     Active Substance: SORAFENIB
     Indication: Thyroid cancer metastatic
     Dosage: 400 MG, BID
     Dates: start: 20240304, end: 20240322
  2. NEXAVAR [Suspect]
     Active Substance: SORAFENIB
     Indication: Thyroid cancer metastatic
     Dosage: 200 MG, BID
     Dates: start: 20240407

REACTIONS (16)
  - Gait disturbance [Recovering/Resolving]
  - Syncope [Recovering/Resolving]
  - Hypersensitivity [Recovering/Resolving]
  - Blister [Recovering/Resolving]
  - Blister [Recovering/Resolving]
  - Dermatitis [Recovering/Resolving]
  - Tongue injury [Recovering/Resolving]
  - Pruritus [Recovering/Resolving]
  - Erythema [Recovering/Resolving]
  - Stomatitis [Recovering/Resolving]
  - Palmoplantar keratoderma [None]
  - Alopecia [Recovering/Resolving]
  - Headache [Recovering/Resolving]
  - Insomnia [Recovering/Resolving]
  - Dizziness [Recovering/Resolving]
  - Pain in extremity [Not Recovered/Not Resolved]

NARRATIVE: CASE EVENT DATE: 20240311
